FAERS Safety Report 21421763 (Version 1)
Quarter: 2022Q4

REPORT INFORMATION
  Report Type: Spontaneous
  Country: FR (occurrence: FR)
  Receive Date: 20221007
  Receipt Date: 20221007
  Transmission Date: 20230113
  Serious: Yes (Hospitalization)
  Sender: FDA-Public Use
  Company Number: None

PATIENT

DRUGS (3)
  1. LAMICTAL [Suspect]
     Active Substance: LAMOTRIGINE
     Indication: Toxicity to various agents
     Dosage: UNK;7-8 CPS
     Route: 048
     Dates: start: 20220313, end: 20220313
  2. QUETIAPINE FUMARATE [Suspect]
     Active Substance: QUETIAPINE FUMARATE
     Indication: Toxicity to various agents
     Dosage: UNK(7-8 CPS)
     Route: 048
     Dates: start: 20220313, end: 20220313
  3. TRIMEPRAZINE TARTRATE [Suspect]
     Active Substance: TRIMEPRAZINE TARTRATE
     Indication: Toxicity to various agents
     Dosage: UNK;7-8 CPS
     Route: 048
     Dates: start: 20220313, end: 20220313

REACTIONS (4)
  - Urinary incontinence [Unknown]
  - Intentional overdose [Recovered/Resolved]
  - Vomiting [Unknown]
  - Tremor [Unknown]

NARRATIVE: CASE EVENT DATE: 20220313
